FAERS Safety Report 8536993 (Version 5)
Quarter: 2013Q4

REPORT INFORMATION
  Report Type: Spontaneous
  Country: US (occurrence: US)
  Receive Date: 20120430
  Receipt Date: 20131031
  Transmission Date: 20140711
  Serious: Yes (Hospitalization, Disabling, Other)
  Sender: FDA-Public Use
  Company Number: US-009507513-1204USA04094

PATIENT
  Age: 75 Year
  Sex: Female

DRUGS (7)
  1. FOSAMAX [Suspect]
     Indication: OSTEOPOROSIS
     Dosage: 70 MG, QW
     Route: 048
     Dates: start: 2006, end: 201112
  2. LYRICA [Concomitant]
     Dosage: 50 UNK, TID
     Route: 048
  3. CALCIUM (UNSPECIFIED) [Concomitant]
  4. HYDROCORTONE [Concomitant]
     Route: 048
  5. LOSARTAN POTASSIUM [Concomitant]
     Dosage: 100 G, QD
     Route: 048
  6. JODIN [Concomitant]
     Dosage: 400 UNK, BID
     Route: 048
  7. AMITRIPTYLINE HYDROCHLORIDE [Concomitant]
     Dosage: 50 G, UNK
     Route: 048

REACTIONS (3)
  - Femur fracture [Not Recovered/Not Resolved]
  - Upper limb fracture [Recovered/Resolved]
  - Arthralgia [Unknown]
